FAERS Safety Report 5798221-9 (Version None)
Quarter: 2008Q3

REPORT INFORMATION
  Report Type: 
  Country: None (occurrence: None)
  Receive Date: 20080702
  Receipt Date: 20080627
  Transmission Date: 20090109
  Serious: Yes (Hospitalization)
  Sender: FDA-Public Use
  Company Number: B0527035A

PATIENT
  Age: 53 Year
  Sex: Female

DRUGS (3)
  1. AMOXICILLIN TRIHYDRATE [Suspect]
     Indication: BRONCHITIS
     Route: 048
     Dates: start: 20080515, end: 20080516
  2. AUGMENTIN '125' [Concomitant]
     Indication: SEPSIS
     Route: 065
     Dates: start: 20080516, end: 20080501
  3. GENTAMICIN [Concomitant]
     Indication: SEPSIS
     Route: 065
     Dates: start: 20080516, end: 20080501

REACTIONS (9)
  - ACUTE GENERALISED EXANTHEMATOUS PUSTULOSIS [None]
  - DERMATITIS EXFOLIATIVE [None]
  - ECZEMA [None]
  - ERYTHEMA [None]
  - FACE OEDEMA [None]
  - OEDEMA PERIPHERAL [None]
  - PYREXIA [None]
  - SEPSIS [None]
  - TOXIC SKIN ERUPTION [None]
